FAERS Safety Report 5740823-X (Version None)
Quarter: 2008Q2

REPORT INFORMATION
  Report Type: 
  Country: None (occurrence: None)
  Receive Date: 20080516
  Receipt Date: 20080506
  Transmission Date: 20081010
  Serious: Yes (Death, Other)
  Sender: FDA-Public Use
  Company Number: US-ELI_LILLY_AND_COMPANY-US200805001777

PATIENT
  Age: 58 Year
  Sex: Female

DRUGS (3)
  1. CYMBALTA [Suspect]
     Dosage: 90 MG, UNK
  2. DURAGESIC-100 [Concomitant]
     Dosage: 50 UG, UNK
  3. NORCO [Concomitant]
     Dosage: BEEN KNOWN TO TAKE UP TO 14 TABLETS A DAY

REACTIONS (2)
  - DEATH [None]
  - DRUG LEVEL INCREASED [None]
